FAERS Safety Report 18705278 (Version 1)
Quarter: 2021Q1

REPORT INFORMATION
  Report Type: Spontaneous
  Country: US (occurrence: US)
  Receive Date: 20210106
  Receipt Date: 20210106
  Transmission Date: 20210419
  Serious: Yes (Other)
  Sender: FDA-Public Use
  Company Number: US-GILEAD-2021-0511357

PATIENT
  Age: 34 Year
  Sex: Male
  Weight: 78.93 kg

DRUGS (53)
  1. TRUVADA [Suspect]
     Active Substance: EMTRICITABINE\TENOFOVIR DISOPROXIL FUMARATE
     Dosage: UNK
     Route: 048
     Dates: start: 20080515, end: 20130613
  2. STRIBILD [Suspect]
     Active Substance: COBICISTAT\ELVITEGRAVIR\EMTRICITABINE\TENOFOVIR DISOPROXIL FUMARATE
     Dosage: UNK
     Route: 048
     Dates: start: 2004, end: 2012
  3. ACETAMINOPHEN. [Concomitant]
     Active Substance: ACETAMINOPHEN
  4. TIVICAY [Concomitant]
     Active Substance: DOLUTEGRAVIR SODIUM
  5. ASPRIN [Concomitant]
     Active Substance: ASPIRIN
  6. PROCRIT [Concomitant]
     Active Substance: ERYTHROPOIETIN
  7. SODIUM POLYSTYRENE SULFONATE. [Concomitant]
     Active Substance: SODIUM POLYSTYRENE SULFONATE
  8. LISINOPRIL. [Concomitant]
     Active Substance: LISINOPRIL
  9. HYDROCHLOROTHIAZIDE. [Concomitant]
     Active Substance: HYDROCHLOROTHIAZIDE
  10. QUINAPRIL. [Concomitant]
     Active Substance: QUINAPRIL
  11. PROMETHAZINE [Concomitant]
     Active Substance: PROMETHAZINE HYDROCHLORIDE
  12. ACCUPRIL [Concomitant]
     Active Substance: QUINAPRIL HYDROCHLORIDE
  13. AMLODIPINE [Concomitant]
     Active Substance: AMLODIPINE BESYLATE
  14. HYDROCODONE/ACETAMINOPHEN [Concomitant]
     Active Substance: ACETAMINOPHEN\HYDROCODONE
  15. ONDANSETRON [Concomitant]
     Active Substance: ONDANSETRON
  16. NORVIR [Concomitant]
     Active Substance: RITONAVIR
  17. PREDNISONE. [Concomitant]
     Active Substance: PREDNISONE
  18. SODIUM BICARBONATE. [Concomitant]
     Active Substance: SODIUM BICARBONATE
  19. IBUPROFEN. [Concomitant]
     Active Substance: IBUPROFEN
  20. TRUVADA [Suspect]
     Active Substance: EMTRICITABINE\TENOFOVIR DISOPROXIL FUMARATE
     Dosage: UNK
     Route: 048
     Dates: start: 2004, end: 2012
  21. NEPHRO VITE RX [Concomitant]
     Active Substance: ASCORBIC ACID\BIOTIN\CALCIUM PANTOTHENATE\CYANOCOBALAMIN\FOLIC ACID\NIACINAMIDE\PYRIDOXINE HYDROCHLORIDE\RIBOFLAVIN\THIAMINE MONONITRATE
  22. OMEPRAZOLE. [Concomitant]
     Active Substance: OMEPRAZOLE
  23. CALCITRIOL. [Concomitant]
     Active Substance: CALCITRIOL
  24. CEPHALEXINE [Concomitant]
     Active Substance: CEPHALEXIN
  25. CIPROFLOXACIN. [Concomitant]
     Active Substance: CIPROFLOXACIN
  26. AZITHROMYCIN ANHYDROUS. [Concomitant]
     Active Substance: AZITHROMYCIN ANHYDROUS
  27. REYATAZ [Concomitant]
     Active Substance: ATAZANAVIR SULFATE
  28. ZIAGEN [Concomitant]
     Active Substance: ABACAVIR SULFATE
  29. EPZICOM [Concomitant]
     Active Substance: ABACAVIR SULFATE\LAMIVUDINE
  30. AMOXICILLIN. [Concomitant]
     Active Substance: AMOXICILLIN
  31. TIZANIDINE. [Concomitant]
     Active Substance: TIZANIDINE
  32. ABACAVIR. [Concomitant]
     Active Substance: ABACAVIR
  33. TRUVADA [Suspect]
     Active Substance: EMTRICITABINE\TENOFOVIR DISOPROXIL FUMARATE
     Indication: HIV INFECTION
     Dosage: UNK
     Route: 048
     Dates: start: 2004, end: 2013
  34. EPIVIR [Concomitant]
     Active Substance: LAMIVUDINE
  35. PENICILLIN NOS [Concomitant]
     Active Substance: PENICILLIN
  36. RENVELA [Concomitant]
     Active Substance: SEVELAMER CARBONATE
  37. SUSTIVA [Concomitant]
     Active Substance: EFAVIRENZ
  38. HEPARIN [Concomitant]
     Active Substance: HEPARIN SODIUM
  39. FUROSEMIDE. [Concomitant]
     Active Substance: FUROSEMIDE
  40. LAMIVUDINE. [Concomitant]
     Active Substance: LAMIVUDINE
  41. STRIBILD [Suspect]
     Active Substance: COBICISTAT\ELVITEGRAVIR\EMTRICITABINE\TENOFOVIR DISOPROXIL FUMARATE
     Indication: HIV INFECTION
     Dosage: UNK
     Route: 048
     Dates: start: 20121108, end: 201212
  42. VITAMIN D [VITAMIN D NOS] [Concomitant]
     Active Substance: VITAMIN D NOS
     Dosage: UNK
  43. CORTISPORIN EYE [Concomitant]
  44. OXYCODONE AND ACETAMINOPHEN [Concomitant]
     Active Substance: ACETAMINOPHEN\OXYCODONE HYDROCHLORIDE
  45. AMOXICILLIN + CLAVULANIC ACID [Concomitant]
     Active Substance: AMOXICILLIN\CLAVULANIC ACID
  46. ALPRAZOLAM. [Concomitant]
     Active Substance: ALPRAZOLAM
  47. BUPRENORPHINE/NALOXONE [Concomitant]
     Active Substance: BUPRENORPHINE\NALOXONE
  48. TRUVADA [Suspect]
     Active Substance: EMTRICITABINE\TENOFOVIR DISOPROXIL FUMARATE
     Dosage: UNK
     Route: 048
     Dates: start: 200410, end: 20130613
  49. STRIBILD [Suspect]
     Active Substance: COBICISTAT\ELVITEGRAVIR\EMTRICITABINE\TENOFOVIR DISOPROXIL FUMARATE
     Dosage: UNK
     Route: 048
     Dates: start: 20121108, end: 20121129
  50. SERTRALINE [Concomitant]
     Active Substance: SERTRALINE HYDROCHLORIDE
  51. DIFLUCAN [Concomitant]
     Active Substance: FLUCONAZOLE
  52. AURYXIA [Concomitant]
     Active Substance: TETRAFERRIC TRICITRATE DECAHYDRATE
  53. DIPHENOXYLATE/ATROPINE [Concomitant]
     Active Substance: ATROPINE\DIPHENOXYLATE

REACTIONS (11)
  - End stage renal disease [Not Recovered/Not Resolved]
  - Clavicle fracture [Unknown]
  - Renal failure [Not Recovered/Not Resolved]
  - Delusional disorder, unspecified type [Unknown]
  - Acute kidney injury [Unknown]
  - Anxiety [Unknown]
  - Chronic kidney disease [Unknown]
  - Anxiety [Not Recovered/Not Resolved]
  - Depression [Unknown]
  - Tooth loss [Not Recovered/Not Resolved]
  - Depression [Not Recovered/Not Resolved]

NARRATIVE: CASE EVENT DATE: 20090326
